FAERS Safety Report 10921016 (Version 1)
Quarter: 2015Q1

REPORT INFORMATION
  Report Type: Spontaneous
  Country: ES (occurrence: ES)
  Receive Date: 20150317
  Receipt Date: 20150317
  Transmission Date: 20150721
  Serious: Yes (Hospitalization, Other)
  Sender: FDA-Public Use
  Company Number: ES-SHIRE-ES201502066

PATIENT
  Age: 40 Year
  Sex: Male

DRUGS (6)
  1. XAGRID [Suspect]
     Active Substance: ANAGRELIDE HYDROCHLORIDE
     Dosage: 1.5 MG, OTHER(1 MG IN THE MORNING AND 0.5 MG AT NIGHT)
     Route: 048
     Dates: start: 20121016
  2. XAGRID [Suspect]
     Active Substance: ANAGRELIDE HYDROCHLORIDE
     Dosage: 1 MG, OTHER(EVERY 12 HOURS)
     Route: 048
     Dates: start: 20081111
  3. ACETYLSALICYLIC ACID [Concomitant]
     Active Substance: ASPIRIN
     Indication: PRODUCT USED FOR UNKNOWN INDICATION
     Dosage: 100 MG, 1X/DAY:QD
     Route: 065
     Dates: start: 20090609
  4. XAGRID [Suspect]
     Active Substance: ANAGRELIDE HYDROCHLORIDE
     Indication: POLYCYTHAEMIA VERA
     Dosage: 0.5 MG, OTHER(EVERY 6 HOURS)
     Route: 048
     Dates: start: 199803
  5. XAGRID [Suspect]
     Active Substance: ANAGRELIDE HYDROCHLORIDE
     Dosage: 1.5 MG, OTHER(0.5 MG MORNING AND 1 MG NIGHT)
     Route: 048
     Dates: start: 20130917, end: 20131010
  6. XAGRID [Suspect]
     Active Substance: ANAGRELIDE HYDROCHLORIDE
     Indication: ESSENTIAL THROMBOCYTHAEMIA
     Dosage: 0.5 MG, OTHER(EVERY 12 HOURS)
     Route: 048
     Dates: start: 200906

REACTIONS (4)
  - Acute myocardial infarction [Unknown]
  - Polycythaemia vera [Unknown]
  - Drug ineffective [Unknown]
  - Off label use [Recovered/Resolved]

NARRATIVE: CASE EVENT DATE: 20090609
